FAERS Safety Report 16313763 (Version 3)
Quarter: 2019Q2

REPORT INFORMATION
  Report Type: Spontaneous
  Country: US (occurrence: US)
  Receive Date: 20190515
  Receipt Date: 20190628
  Transmission Date: 20190711
  Serious: Yes (Hospitalization, Other)
  Sender: FDA-Public Use
  Company Number: US-PFIZER INC-2019201964

PATIENT
  Age: 81 Year
  Sex: Male

DRUGS (2)
  1. HUMIRA [Concomitant]
     Active Substance: ADALIMUMAB
     Indication: RHEUMATOID ARTHRITIS
     Dosage: UNK
     Route: 048
     Dates: start: 201808, end: 201812
  2. METHOTREXATE SODIUM. [Suspect]
     Active Substance: METHOTREXATE SODIUM
     Indication: RHEUMATOID ARTHRITIS
     Dosage: 20 MG, WEEKLY, Q WEEKLY (ONCE WEEKLY)
     Route: 048
     Dates: start: 201803, end: 201812

REACTIONS (3)
  - Dyspnoea [Recovered/Resolved]
  - Loss of personal independence in daily activities [Unknown]
  - Drug ineffective [Unknown]
